FAERS Safety Report 17805270 (Version 2)
Quarter: 2020Q2

REPORT INFORMATION
  Report Type: Report from Study
  Country: US (occurrence: US)
  Receive Date: 20200519
  Receipt Date: 20200615
  Transmission Date: 20200714
  Serious: Yes (Death, Hospitalization)
  Sender: FDA-Public Use
  Company Number: US-ACTELION-A-NJ2019-196568

PATIENT
  Age: 65 Year
  Sex: Female
  Weight: 42.63 kg

DRUGS (8)
  1. OPSUMIT [Suspect]
     Active Substance: MACITENTAN
     Indication: PULMONARY ARTERIAL HYPERTENSION
     Dosage: 10 MG, QD
     Route: 048
  2. VELETRI [Suspect]
     Active Substance: EPOPROSTENOL
     Dosage: 12 NG/KG, PER MIN
     Route: 042
  3. VELETRI [Suspect]
     Active Substance: EPOPROSTENOL
     Indication: PULMONARY ARTERIAL HYPERTENSION
     Dosage: 19 NG/KG, PER MIN
     Route: 042
  4. NIFEDIPINE. [Concomitant]
     Active Substance: NIFEDIPINE
  5. TADALAFIL. [Concomitant]
     Active Substance: TADALAFIL
  6. TYVASO [Suspect]
     Active Substance: TREPROSTINIL
     Indication: PRODUCT USED FOR UNKNOWN INDICATION
     Route: 065
  7. DILTIAZEM. [Concomitant]
     Active Substance: DILTIAZEM
  8. VELETRI [Suspect]
     Active Substance: EPOPROSTENOL
     Dosage: 18 NG/KG, PER MIN
     Route: 042
     Dates: end: 202002

REACTIONS (13)
  - Headache [Unknown]
  - Hospice care [Unknown]
  - Pain [Not Recovered/Not Resolved]
  - Skin exfoliation [Unknown]
  - Disease complication [Fatal]
  - Dyspnoea at rest [Not Recovered/Not Resolved]
  - Pulmonary hypertension [Fatal]
  - Diarrhoea [Unknown]
  - Pain in jaw [Not Recovered/Not Resolved]
  - Respiratory failure [Fatal]
  - Cardiac failure [Fatal]
  - Pericardial effusion [Unknown]
  - Dyspnoea exertional [Not Recovered/Not Resolved]

NARRATIVE: CASE EVENT DATE: 20200501
